FAERS Safety Report 17123867 (Version 6)
Quarter: 2020Q1

REPORT INFORMATION
  Report Type: Report from Study
  Country: US (occurrence: US)
  Receive Date: 20191206
  Receipt Date: 20200213
  Transmission Date: 20200409
  Serious: Yes (Hospitalization, Other)
  Sender: FDA-Public Use
  Company Number: US-ACTELION-A-NJ2019-194690

PATIENT
  Age: 53 Year
  Sex: Male
  Weight: 99.77 kg

DRUGS (7)
  1. SILDENAFIL CITRATE. [Concomitant]
     Active Substance: SILDENAFIL CITRATE
  2. OPSUMIT [Suspect]
     Active Substance: MACITENTAN
     Indication: PULMONARY HYPERTENSION
     Dosage: 10 MG, QD
     Route: 048
     Dates: start: 20170929
  3. VELETRI [Suspect]
     Active Substance: EPOPROSTENOL
     Indication: PULMONARY HYPERTENSION
     Dosage: 20 NG/KG, PER MIN
     Route: 042
  4. VELETRI [Suspect]
     Active Substance: EPOPROSTENOL
     Dosage: 10 NG/KG, PER MIN
     Route: 042
  5. UPTRAVI [Concomitant]
     Active Substance: SELEXIPAG
     Indication: PULMONARY HYPERTENSION
  6. VELETRI [Suspect]
     Active Substance: EPOPROSTENOL
     Dosage: 18 NG/KG, PER MIN
     Route: 042
  7. VELETRI [Suspect]
     Active Substance: EPOPROSTENOL
     Dosage: 15 NG/KG, PER MIN
     Route: 042

REACTIONS (31)
  - Fluid overload [Unknown]
  - Cardiac disorder [Unknown]
  - Chest discomfort [Unknown]
  - Flushing [Unknown]
  - Weight increased [Unknown]
  - Sinus congestion [Unknown]
  - Hypotension [Unknown]
  - Head discomfort [Unknown]
  - Nasopharyngitis [Unknown]
  - Muscle spasms [Unknown]
  - Cellulitis [Unknown]
  - Dyspnoea [Unknown]
  - Catheter site irritation [Unknown]
  - Renal failure [Unknown]
  - Ear congestion [Unknown]
  - Muscular weakness [Unknown]
  - Tremor [Unknown]
  - Asthenia [Unknown]
  - Cardiac failure congestive [Unknown]
  - Cough [Not Recovered/Not Resolved]
  - Oedema peripheral [Recovering/Resolving]
  - Sinusitis [Unknown]
  - Swelling [Unknown]
  - Pain in extremity [Unknown]
  - Pruritus [Recovering/Resolving]
  - Localised infection [Unknown]
  - Oedema [Unknown]
  - Pulmonary hypertension [Unknown]
  - Neuropathy peripheral [Unknown]
  - Fall [Unknown]
  - Torus fracture [Unknown]

NARRATIVE: CASE EVENT DATE: 201908
